FAERS Safety Report 25942242 (Version 1)
Quarter: 2025Q4

REPORT INFORMATION
  Report Type: Spontaneous
  Country: GB (occurrence: GB)
  Receive Date: 20251020
  Receipt Date: 20251020
  Transmission Date: 20260117
  Serious: Yes (Other)
  Sender: TEVA
  Company Number: GB-MHRA-TPP5827592C8199136YC1760183842338

PATIENT
  Age: 88 Year
  Sex: Female
  Weight: 64 kg

DRUGS (25)
  1. TRIMETHOPRIM [Suspect]
     Active Substance: TRIMETHOPRIM
     Indication: Product used for unknown indication
     Dosage: TO TREAT URINE
     Route: 065
     Dates: start: 20251009
  2. NITROGLYCERIN [Concomitant]
     Active Substance: NITROGLYCERIN
     Indication: Ill-defined disorder
     Dosage: ONE PUFF AS NEEDED
     Dates: start: 20240715
  3. HUMULIN L [Concomitant]
     Active Substance: INSULIN HUMAN
     Indication: Ill-defined disorder
     Dosage: USE AS DIRECTED
     Dates: start: 20250925
  4. BLISSEL [Concomitant]
     Indication: Ill-defined disorder
     Dosage: APPLY ONE APPLICATORFUL AT BEDTIME FOR 3-4WEEKS...
     Dates: start: 20251008
  5. BUPRENORPHINE [Concomitant]
     Active Substance: BUPRENORPHINE
     Indication: Ill-defined disorder
     Dosage: APPLY ONE WEEKLY
     Dates: start: 20250410
  6. ACETAMINOPHEN [Concomitant]
     Active Substance: ACETAMINOPHEN
     Indication: Ill-defined disorder
     Dosage: TAKE ONE-TWO 4 TIMES/DAY WHEN REQUIRED
     Dates: start: 20240715
  7. FERROUS FUMARATE [Concomitant]
     Active Substance: FERROUS FUMARATE
     Indication: Ill-defined disorder
     Dosage: DAILY DOSE: 1 DOSAGE FORM
     Dates: start: 20250411
  8. ESTRADIOL [Concomitant]
     Active Substance: ESTRADIOL
     Indication: Ill-defined disorder
     Dosage: ONE TO BE INSERTED INTO THE VAGINA DAILY FOR TH...
     Dates: start: 20250910, end: 20250911
  9. CETIRIZINE [Concomitant]
     Active Substance: CETIRIZINE HYDROCHLORIDE
     Indication: Ill-defined disorder
     Dosage: HALF A TABLET ONCE EVERY 2 DAYS
     Dates: start: 20250903, end: 20251003
  10. LOSARTAN [Concomitant]
     Active Substance: LOSARTAN
     Indication: Ill-defined disorder
     Dosage: DAILY DOSE: 1 DOSAGE FORM
     Dates: start: 20250411
  11. DEXTROSE [Concomitant]
     Active Substance: DEXTROSE MONOHYDRATE
     Indication: Ill-defined disorder
     Dosage: RUB IN TO GUMS IF SIGNS+/OR SYMPTOMS OF LOW SUGAR
     Dates: start: 20250925
  12. IBUPROFEN [Concomitant]
     Active Substance: IBUPROFEN
     Indication: Ill-defined disorder
     Dosage: APPLY 3 TIMES/DAY
     Dates: start: 20250411, end: 20250905
  13. DOXYCYCLINE [Concomitant]
     Active Substance: DOXYCYCLINE
     Indication: Ill-defined disorder
     Dosage: TAKE TWO NOW, THEN ONE DAILY FOR 6 DAYS TO TREA...
     Dates: start: 20250903, end: 20250910
  14. CLOTRIMAZOLE [Concomitant]
     Active Substance: CLOTRIMAZOLE
     Indication: Ill-defined disorder
     Dosage: APPLY TWO TO THREE TIMES A DAY, TO TREAT FUNGAL...
     Dates: start: 20250815, end: 20250822
  15. HYDROCORTISONE [Concomitant]
     Active Substance: HYDROCORTISONE
     Indication: Ill-defined disorder
     Dosage: APPLY TWICE DAILY
     Dates: start: 20251009
  16. LANSOPRAZOLE [Concomitant]
     Active Substance: LANSOPRAZOLE
     Indication: Ill-defined disorder
     Dosage: DAILY DOSE: 1 DOSAGE FORM
     Dates: start: 20250314
  17. GLICLAZIDE [Concomitant]
     Active Substance: GLICLAZIDE
     Indication: Ill-defined disorder
     Dosage: DAILY DOSE: 1 DOSAGE FORM
     Dates: start: 20240715
  18. DAPAGLIFLOZIN [Concomitant]
     Active Substance: DAPAGLIFLOZIN
     Indication: Ill-defined disorder
     Dosage: DAILY DOSE: 1 DOSAGE FORM
     Dates: start: 20250912, end: 20251010
  19. BISOPROLOL [Concomitant]
     Active Substance: BISOPROLOL
     Indication: Ill-defined disorder
     Dosage: DAILY DOSE: 1 DOSAGE FORM
     Dates: start: 20240715
  20. ASPIRIN [Concomitant]
     Active Substance: ASPIRIN
     Indication: Ill-defined disorder
     Dosage: DAILY DOSE: 1 DOSAGE FORM
     Dates: start: 20250411
  21. SENNA [Concomitant]
     Active Substance: SENNOSIDES
     Indication: Ill-defined disorder
     Dosage: TAKE 2 AT NIGHT
     Dates: start: 20250411
  22. ALFACALCIDOL [Concomitant]
     Active Substance: ALFACALCIDOL
     Indication: Ill-defined disorder
     Dosage: DAILY DOSE: 1 DOSAGE FORM
     Dates: start: 20240715
  23. METRONIDAZOLE [Concomitant]
     Active Substance: METRONIDAZOLE
     Indication: Ill-defined disorder
     Dosage: DAILY DOSE: 2 DOSAGE FORM, FOR 7 DAYS. AVOID A...
     Dates: start: 20250813, end: 20250820
  24. POLYETHYLENE GLYCOL 3350\POTASSIUM CHLORIDE\SODIUM BICARBONATE\SODIUM [Concomitant]
     Active Substance: POLYETHYLENE GLYCOL 3350\POTASSIUM CHLORIDE\SODIUM BICARBONATE\SODIUM CHLORIDE
     Indication: Ill-defined disorder
     Dosage: 1 TO 3 MACROGOL COMPOUND NPF SUGAR FREE SACHETS DAILY IN DIVIDED DOSES ACCORDING TO INDIVIDUAL RE...
     Dates: start: 20250917, end: 20250924
  25. LINAGLIPTIN [Concomitant]
     Active Substance: LINAGLIPTIN
     Indication: Ill-defined disorder
     Dosage: DAILY DOSE: 1 DOSAGE FORM
     Dates: start: 20240715

REACTIONS (1)
  - Angioedema [Recovering/Resolving]

NARRATIVE: CASE EVENT DATE: 20251011
